FAERS Safety Report 4308581-3 (Version None)
Quarter: 2004Q1

REPORT INFORMATION
  Report Type: 
  Country: None (occurrence: None)
  Receive Date: 20040301
  Receipt Date: 20040225
  Transmission Date: 20041129
  Serious: Yes (Death)
  Sender: FDA-Public Use
  Company Number: WAES 0402USA01893

PATIENT
  Age: 61 Year
  Sex: Male

DRUGS (6)
  1. ASPIRIN [Concomitant]
  2. TOPROL-XL [Concomitant]
  3. ALTACE [Concomitant]
  4. VIOXX [Suspect]
     Indication: PAIN
     Route: 048
     Dates: start: 20020101
  5. VIOXX [Suspect]
     Indication: ARTHRITIS
     Route: 048
     Dates: start: 20020101
  6. CRESTOR [Concomitant]

REACTIONS (1)
  - SUDDEN CARDIAC DEATH [None]
